FAERS Safety Report 5141086-9 (Version None)
Quarter: 2006Q4

REPORT INFORMATION
  Report Type: 
  Country: None (occurrence: None)
  Receive Date: 20061101
  Receipt Date: 20061020
  Transmission Date: 20070319
  Serious: Yes (Other)
  Sender: FDA-Public Use
  Company Number: DE-JNJFOC-20061005105

PATIENT
  Age: 20 Year
  Sex: Male

DRUGS (1)
  1. CONCERTA [Suspect]
     Indication: ATTENTION DEFICIT/HYPERACTIVITY DISORDER
     Dosage: 8 TABLETS DAILY
     Route: 048

REACTIONS (4)
  - CARDIAC DISORDER [None]
  - DIZZINESS [None]
  - NONSPECIFIC REACTION [None]
  - VERTIGO [None]
